FAERS Safety Report 19780204 (Version 2)
Quarter: 2021Q3

REPORT INFORMATION
  Report Type: Report from Study
  Country: FR (occurrence: FR)
  Receive Date: 20210902
  Receipt Date: 20210909
  Transmission Date: 20211014
  Serious: Yes (Other)
  Sender: FDA-Public Use
  Company Number: FR-GLAXOSMITHKLINE-FR2021GSK182548

PATIENT
  Age: 70 Year
  Sex: Female
  Weight: 67 kg

DRUGS (11)
  1. PACLITAXEL. [Suspect]
     Active Substance: PACLITAXEL
     Indication: OVARIAN CANCER
     Dosage: 300 MG
     Route: 042
     Dates: start: 20201113, end: 20201113
  2. BEVACIZUMAB. [Suspect]
     Active Substance: BEVACIZUMAB
     Indication: OVARIAN CANCER
     Dosage: UNK
  3. DOCETAXEL. [Concomitant]
     Active Substance: DOCETAXEL
     Dosage: UNK
  4. NIRAPARIB [Suspect]
     Active Substance: NIRAPARIB
     Dosage: 100 MG
     Dates: start: 20210826
  5. CARBOPLATINE [Suspect]
     Active Substance: CARBOPLATIN
     Indication: OVARIAN CANCER
     Dosage: 5 AUC
     Route: 042
     Dates: start: 20201113, end: 20201113
  6. NIRAPARIB [Suspect]
     Active Substance: NIRAPARIB
     Indication: OVARIAN CANCER
     Dosage: UNK
  7. DOSTARLIMAB [Suspect]
     Active Substance: DOSTARLIMAB
     Dosage: 1000 MG
     Dates: start: 20210805, end: 20210805
  8. PACLITAXEL. [Suspect]
     Active Substance: PACLITAXEL
     Dosage: 276 MG
     Route: 042
     Dates: start: 20210413, end: 20210413
  9. CARBOPLATINE [Suspect]
     Active Substance: CARBOPLATIN
     Dosage: 5 AUC
     Route: 042
     Dates: start: 20210413, end: 20210413
  10. CISPLATIN. [Concomitant]
     Active Substance: CISPLATIN
     Dosage: UNK
  11. DOSTARLIMAB [Suspect]
     Active Substance: DOSTARLIMAB
     Indication: OVARIAN CANCER
     Dosage: 500 MG
     Dates: start: 20201204, end: 20201204

REACTIONS (1)
  - Malnutrition [Not Recovered/Not Resolved]

NARRATIVE: CASE EVENT DATE: 20210827
